FAERS Safety Report 8193337-4 (Version None)
Quarter: 2012Q1

REPORT INFORMATION
  Report Type: 
  Country: None (occurrence: None)
  Receive Date: 20120308
  Receipt Date: 20120306
  Transmission Date: 20120608
  Serious: No
  Sender: FDA-Public Use
  Company Number: US-PFIZER INC-2012010105

PATIENT
  Sex: Male

DRUGS (2)
  1. CORGARD [Suspect]
     Indication: ARRHYTHMIA
     Dosage: 40 MG, 1X/DAY
     Route: 048
  2. LIPITOR [Concomitant]
     Dosage: 20 MG, UNK

REACTIONS (1)
  - DRUG INEFFECTIVE [None]
